FAERS Safety Report 22060375 (Version 1)
Quarter: 2023Q1

REPORT INFORMATION
  Report Type: Report from Study
  Country: IN (occurrence: IN)
  Receive Date: 20230303
  Receipt Date: 20230303
  Transmission Date: 20230418
  Serious: Yes (Other)
  Sender: FDA-Public Use
  Company Number: IN-002147023-NVSC2023IN045326

PATIENT
  Age: 41 Year
  Sex: Male

DRUGS (1)
  1. TACROLIMUS [Suspect]
     Active Substance: TACROLIMUS
     Indication: Renal transplant
     Dosage: 1 MG, BID
     Route: 065
     Dates: start: 20190124, end: 20221022

REACTIONS (1)
  - Transplant rejection [Unknown]

NARRATIVE: CASE EVENT DATE: 20221022
